FAERS Safety Report 21397123 (Version 1)
Quarter: 2022Q3

REPORT INFORMATION
  Report Type: Spontaneous
  Country: AU (occurrence: AU)
  Receive Date: 20220930
  Receipt Date: 20220930
  Transmission Date: 20221027
  Serious: Yes (Other)
  Sender: FDA-Public Use
  Company Number: AU-XERIS PHARMACEUTICALS-2022XER00340

PATIENT
  Age: 71 Year
  Sex: Male

DRUGS (1)
  1. GLUCAGON [Suspect]
     Active Substance: GLUCAGON
     Indication: Drug therapy
     Dosage: 1 MG
     Route: 042

REACTIONS (1)
  - Hyperkalaemia [Recovered/Resolved]
